FAERS Safety Report 12267995 (Version 3)
Quarter: 2016Q2

REPORT INFORMATION
  Report Type: Spontaneous
  Country: US (occurrence: US)
  Receive Date: 20160414
  Receipt Date: 20160421
  Transmission Date: 20160815
  Serious: Yes (Hospitalization, Other)
  Sender: FDA-Public Use
  Company Number: US-009507513-1604USA008381

PATIENT
  Sex: Female

DRUGS (1)
  1. FOSAMAX [Suspect]
     Active Substance: ALENDRONATE SODIUM
     Indication: OSTEOPOROSIS
     Dosage: UNK
     Route: 048
     Dates: start: 2002, end: 2012

REACTIONS (27)
  - Thyroid mass [Unknown]
  - Emphysema [Unknown]
  - Pleural fibrosis [Unknown]
  - Lymphadenopathy [Unknown]
  - Tooth impacted [Unknown]
  - Wound dehiscence [Recovered/Resolved with Sequelae]
  - Aortic arteriosclerosis [Unknown]
  - Carotid arteriosclerosis [Unknown]
  - Osteitis [Unknown]
  - Peroneal nerve injury [Unknown]
  - Joint arthroplasty [Unknown]
  - Jaw fracture [Unknown]
  - Incision site abscess [Recovering/Resolving]
  - Hypoaesthesia [Not Recovered/Not Resolved]
  - Pulmonary granuloma [Unknown]
  - Spinal osteoarthritis [Unknown]
  - Vertebral foraminal stenosis [Unknown]
  - Mobility decreased [Not Recovered/Not Resolved]
  - Pulmonary calcification [Unknown]
  - Osteonecrosis of jaw [Recovered/Resolved]
  - Ankle fracture [Unknown]
  - Spondylolisthesis [Unknown]
  - Osteomyelitis [Unknown]
  - Muscular weakness [Not Recovered/Not Resolved]
  - Periodontitis [Unknown]
  - Pharyngitis [Unknown]
  - Arthralgia [Not Recovered/Not Resolved]

NARRATIVE: CASE EVENT DATE: 20140425
